FAERS Safety Report 13251749 (Version 6)
Quarter: 2019Q3

REPORT INFORMATION
  Report Type: Spontaneous
  Country: US (occurrence: US)
  Receive Date: 20170220
  Receipt Date: 20190917
  Transmission Date: 20191004
  Serious: No
  Sender: FDA-Public Use
  Company Number: US-PFIZER INC-2017066415

PATIENT
  Age: 34 Year
  Sex: Female

DRUGS (5)
  1. CYMBALTA [Concomitant]
     Active Substance: DULOXETINE HYDROCHLORIDE
     Dosage: 30 MG, 1X/DAY
     Route: 048
  2. LYRICA [Suspect]
     Active Substance: PREGABALIN
     Indication: TRIGEMINAL NEURALGIA
     Dosage: 150 MG, 3X/DAY
     Route: 048
     Dates: start: 20160630
  3. LYRICA [Suspect]
     Active Substance: PREGABALIN
     Dosage: 150 MG, 2X/DAY
     Route: 048
  4. LYRICA [Suspect]
     Active Substance: PREGABALIN
     Dosage: 150 MG, UNK
     Dates: start: 201605
  5. CYMBALTA [Concomitant]
     Active Substance: DULOXETINE HYDROCHLORIDE
     Dosage: 60 MG, 1X/DAY
     Dates: start: 201605

REACTIONS (9)
  - Depressed mood [Unknown]
  - Nervousness [Unknown]
  - Sinusitis [Recovered/Resolved]
  - Dizziness [Unknown]
  - Product dose omission [Recovered/Resolved]
  - Gingival disorder [Recovered/Resolved]
  - Mood altered [Unknown]
  - Irritability [Unknown]
  - Headache [Unknown]

NARRATIVE: CASE EVENT DATE: 20190417
